FAERS Safety Report 9689235 (Version 1)
Quarter: 2013Q4

REPORT INFORMATION
  Report Type: Spontaneous
  Country: FR (occurrence: FR)
  Receive Date: 20131114
  Receipt Date: 20131114
  Transmission Date: 20140711
  Serious: Yes (Hospitalization)
  Sender: FDA-Public Use
  Company Number: FR-TEVA-442918ISR

PATIENT
  Age: 72 Year
  Sex: Female

DRUGS (5)
  1. AZILECT 1MG [Suspect]
     Indication: PARKINSON^S DISEASE
     Route: 048
     Dates: start: 20130821, end: 20130828
  2. PRADAXA 110MG [Suspect]
     Indication: ARRHYTHMIA
     Dosage: 110 MILLIGRAM DAILY;
     Route: 048
     Dates: end: 20130828
  3. PROPRANOLOL [Concomitant]
  4. ESOMEPRAZOLE [Concomitant]
  5. DOMPERIDONE [Concomitant]

REACTIONS (1)
  - Pulmonary embolism [Recovered/Resolved]
